FAERS Safety Report 9285537 (Version 2)
Quarter: 2013Q2

REPORT INFORMATION
  Report Type: Spontaneous
  Country: AT (occurrence: AT)
  Receive Date: 20130513
  Receipt Date: 20130520
  Transmission Date: 20140414
  Serious: Yes (Other)
  Sender: FDA-Public Use
  Company Number: AT-ROCHE-1223693

PATIENT
  Age: 47 Year
  Sex: Female

DRUGS (6)
  1. XOLAIR [Suspect]
     Indication: ASTHMA
     Route: 058
     Dates: start: 20130507, end: 20130507
  2. FOSTER [Concomitant]
  3. SPIRIVA [Concomitant]
  4. BERODUAL [Concomitant]
  5. COMBIVENT [Concomitant]
  6. AERIUS [Concomitant]

REACTIONS (3)
  - Dyspnoea [Recovered/Resolved]
  - Nausea [Recovered/Resolved]
  - Diarrhoea [Recovered/Resolved]
